FAERS Safety Report 7703766-8 (Version None)
Quarter: 2011Q3

REPORT INFORMATION
  Report Type: 
  Country: None (occurrence: None)
  Receive Date: 20110823
  Receipt Date: 20110329
  Transmission Date: 20111222
  Serious: Yes (Other)
  Sender: FDA-Public Use
  Company Number: CA-AMGEN-CANSP2011016741

PATIENT
  Age: 72 Year
  Sex: Male
  Weight: 72.6 kg

DRUGS (3)
  1. ENBREL [Suspect]
     Indication: RHEUMATOID ARTHRITIS
     Dosage: 50 MG, QWK
     Dates: start: 20070903
  2. ANTIHYPERTENSIVES [Concomitant]
  3. METHOTREXATE [Concomitant]

REACTIONS (1)
  - KNEE ARTHROPLASTY [None]
